FAERS Safety Report 6975825-9 (Version None)
Quarter: 2010Q3

REPORT INFORMATION
  Report Type: 
  Country: None (occurrence: None)
  Receive Date: 20100910
  Receipt Date: 20090409
  Transmission Date: 20110219
  Serious: No
  Sender: FDA-Public Use
  Company Number: US-WYE-H08916709

PATIENT
  Sex: Female

DRUGS (6)
  1. PRISTIQ [Suspect]
     Route: 048
     Dates: start: 20090309, end: 20090309
  2. PRISTIQ [Suspect]
     Route: 048
     Dates: start: 20090408
  3. LOVASTATIN [Concomitant]
  4. OMEPRAZOLE [Concomitant]
  5. TOPAMAX [Concomitant]
  6. LEVOTHYROXINE SODIUM [Concomitant]

REACTIONS (1)
  - NAUSEA [None]
